FAERS Safety Report 7807297-6 (Version None)
Quarter: 2011Q4

REPORT INFORMATION
  Report Type: 
  Country: None (occurrence: None)
  Receive Date: 20111011
  Receipt Date: 20111006
  Transmission Date: 20120403
  Serious: Yes (Disabling, Other)
  Sender: FDA-Public Use
  Company Number: GB-BRISTOL-MYERS SQUIBB COMPANY-15505233

PATIENT
  Age: 54 Year
  Sex: Male
  Weight: 55 kg

DRUGS (7)
  1. ASPIRIN [Concomitant]
     Indication: CARDIOVASCULAR EVENT PROPHYLAXIS
     Dosage: STARTED PRIOR 2008
     Route: 048
  2. TENOFOVIR DISOPROXIL FUMARATE [Concomitant]
     Dates: start: 20090201, end: 20090501
  3. LAMIVUDINE [Concomitant]
     Dates: start: 20090201, end: 20090501
  4. GLICLAZIDE [Concomitant]
     Indication: DIABETES MELLITUS
     Dosage: STARTED PRIOR 2008
     Route: 048
  5. LANSOPRAZOLE [Concomitant]
     Indication: GASTROOESOPHAGEAL REFLUX DISEASE
     Dosage: STARTED PRIOR 2008.
     Route: 048
  6. BARACLUDE [Suspect]
     Indication: HEPATITIS B
     Dosage: OCT2008-UNK; AUG2009-18NOV2010.
     Route: 048
     Dates: start: 20081015, end: 20101118
  7. SIMVASTATIN [Concomitant]
     Indication: BLOOD CHOLESTEROL INCREASED
     Dosage: STARTED PRIOR 2008
     Route: 048

REACTIONS (4)
  - NAUSEA [None]
  - FIBROSIS [None]
  - MACULAR OEDEMA [None]
  - VISUAL ACUITY REDUCED [None]
